FAERS Safety Report 4687421-7 (Version None)
Quarter: 2005Q2

REPORT INFORMATION
  Report Type: 
  Country: None (occurrence: None)
  Receive Date: 20050609
  Receipt Date: 20050609
  Transmission Date: 20051028
  Serious: Yes (Other)
  Sender: FDA-Public Use
  Company Number: None

PATIENT
  Sex: Male
  Weight: 54 kg

DRUGS (5)
  1. CISPLATIN [Suspect]
     Indication: SMALL CELL LUNG CANCER STAGE UNSPECIFIED
     Dosage: 60 MG/M2 IV DAY
     Route: 042
     Dates: start: 20050413
  2. ETOPOSIDE [Suspect]
     Indication: SMALL CELL LUNG CANCER STAGE UNSPECIFIED
     Dosage: 120 MG/M2 IV DAYS 1, 2, AND 3. REPEAT CYCLE EVERY 3 WEEKS X 2 CYCLES, FOLLOWED BY ADJUVANT CHEMO ALO
     Dates: start: 20050413
  3. RADIATION [Suspect]
     Indication: SMALL CELL LUNG CANCER STAGE UNSPECIFIED
     Dates: start: 20050413
  4. LEVAQUIN [Concomitant]
  5. PREVACID [Concomitant]

REACTIONS (3)
  - CANDIDIASIS [None]
  - DYSPHAGIA [None]
  - WHITE BLOOD CELL COUNT DECREASED [None]
